FAERS Safety Report 4376109-8 (Version None)
Quarter: 2004Q2

REPORT INFORMATION
  Report Type: 
  Country: None (occurrence: None)
  Receive Date: 20040609
  Receipt Date: 20040609
  Transmission Date: 20050107
  Serious: Yes (Hospitalization)
  Sender: FDA-Public Use
  Company Number: None

PATIENT
  Age: 65 Year
  Sex: Female

DRUGS (1)
  1. IRESSA [Suspect]
     Indication: GLIOBLASTOMA MULTIFORME
     Dosage: 500 MG PO QD
     Route: 048
     Dates: start: 20040426

REACTIONS (2)
  - BLOOD POTASSIUM DECREASED [None]
  - DIARRHOEA [None]
